FAERS Safety Report 17947011 (Version 1)
Quarter: 2020Q2

REPORT INFORMATION
  Report Type: Spontaneous
  Country: US (occurrence: US)
  Receive Date: 20200626
  Receipt Date: 20200626
  Transmission Date: 20200714
  Serious: No
  Sender: FDA-Public Use
  Company Number: US-ASTRAZENECA-2020SE72179

PATIENT
  Sex: Female
  Weight: 65.8 kg

DRUGS (1)
  1. PULMICORT FLEXHALER [Suspect]
     Active Substance: BUDESONIDE
     Route: 055
     Dates: start: 20110621

REACTIONS (4)
  - Cough [Not Recovered/Not Resolved]
  - Drug dose omission by device [Unknown]
  - Intentional product misuse [Not Recovered/Not Resolved]
  - Device malfunction [Unknown]
